FAERS Safety Report 18863217 (Version 1)
Quarter: 2021Q1

REPORT INFORMATION
  Report Type: Spontaneous
  Country: AU (occurrence: AU)
  Receive Date: 20210208
  Receipt Date: 20210208
  Transmission Date: 20210420
  Serious: Yes (Other)
  Sender: FDA-Public Use
  Company Number: AU-ASTRAZENECA-2021A035024

PATIENT
  Sex: Male

DRUGS (3)
  1. BRILINTA [Suspect]
     Active Substance: TICAGRELOR
     Route: 048
  2. DIASP SR??(DIPYRIDAMOLE / ASPIRIN) [Suspect]
     Active Substance: ASPIRIN\DIPYRIDAMOLE
  3. ASASANTIN SR [Suspect]
     Active Substance: ASPIRIN\DIPYRIDAMOLE
     Dosage: 200 MG/25 MG

REACTIONS (1)
  - Transient ischaemic attack [Unknown]
